FAERS Safety Report 12362128 (Version 1)
Quarter: 2016Q2

REPORT INFORMATION
  Report Type: Spontaneous
  Country: US (occurrence: US)
  Receive Date: 20160512
  Receipt Date: 20160512
  Transmission Date: 20160815
  Serious: No
  Sender: FDA-Public Use
  Company Number: US-MDT-ADR-2016-00476

PATIENT
  Age: 19 Year
  Sex: Male

DRUGS (1)
  1. LIORESAL [Suspect]
     Active Substance: BACLOFEN
     Dosage: 949MCG/DAY
     Route: 037

REACTIONS (6)
  - No therapeutic response [Unknown]
  - Disease progression [Unknown]
  - Musculoskeletal stiffness [Unknown]
  - Incorrect drug administration rate [Unknown]
  - Muscle spasticity [Unknown]
  - Constipation [Unknown]

NARRATIVE: CASE EVENT DATE: 201510
